FAERS Safety Report 9269853 (Version 3)
Quarter: 2013Q4

REPORT INFORMATION
  Report Type: Spontaneous
  Country: DK (occurrence: DK)
  Receive Date: 20130503
  Receipt Date: 20131204
  Transmission Date: 20140711
  Serious: Yes (Life-Threatening, Hospitalization, Other)
  Sender: FDA-Public Use
  Company Number: DK-JNJFOC-20130414821

PATIENT
  Age: 16 Year
  Sex: Female
  Weight: 62 kg

DRUGS (13)
  1. REMICADE [Suspect]
     Indication: JUVENILE IDIOPATHIC ARTHRITIS
     Dosage: DOSE: 400 (UNITS UNSPECIFIED)
     Route: 042
     Dates: start: 20091115, end: 20130117
  2. METEX [Suspect]
     Indication: JUVENILE IDIOPATHIC ARTHRITIS
     Dosage: DOSE: 12.5 (UNITS UNSPECIFIED)
     Route: 065
     Dates: start: 20091115, end: 20121015
  3. DOXORUBICIN [Suspect]
     Indication: HODGKIN^S DISEASE MIXED CELLULARITY STAGE UNSPECIFIED
     Route: 042
     Dates: start: 2013
  4. VINCRISTINE [Suspect]
     Indication: HODGKIN^S DISEASE MIXED CELLULARITY STAGE UNSPECIFIED
     Route: 065
     Dates: start: 2013
  5. ETOPOSIDE [Suspect]
     Indication: HODGKIN^S DISEASE MIXED CELLULARITY STAGE UNSPECIFIED
     Route: 065
     Dates: start: 2013
  6. PREDNISOLONE [Suspect]
     Indication: HODGKIN^S DISEASE MIXED CELLULARITY STAGE UNSPECIFIED
     Route: 065
     Dates: start: 2013
  7. ZYPREXA [Concomitant]
     Indication: MENTAL DISORDER
     Route: 065
     Dates: start: 201202
  8. LYSANTIN [Concomitant]
     Indication: PROPHYLAXIS
     Route: 065
     Dates: start: 201112, end: 201203
  9. SEROQUEL [Concomitant]
     Indication: MENTAL DISORDER
     Route: 065
     Dates: start: 201211, end: 201301
  10. OLANZAPIN [Concomitant]
     Indication: MENTAL DISORDER
     Route: 065
     Dates: start: 201202
  11. ONDANSETRON [Concomitant]
     Route: 065
     Dates: start: 201105
  12. SKINOREN [Concomitant]
     Indication: ACNE
     Route: 065
     Dates: start: 2009
  13. PIROXICAM [Concomitant]
     Indication: JUVENILE IDIOPATHIC ARTHRITIS
     Route: 065
     Dates: start: 2009, end: 2010

REACTIONS (5)
  - Hodgkin^s disease mixed cellularity stage unspecified [Recovering/Resolving]
  - Vocal cord paralysis [Recovering/Resolving]
  - Diarrhoea [Recovering/Resolving]
  - Restlessness [Recovering/Resolving]
  - Tremor [Recovering/Resolving]
